FAERS Safety Report 10185401 (Version 2)
Quarter: 2014Q3

REPORT INFORMATION
  Report Type: Report from Study
  Country: US (occurrence: US)
  Receive Date: 20140521
  Receipt Date: 20140908
  Transmission Date: 20150326
  Serious: Yes (Other)
  Sender: FDA-Public Use
  Company Number: PHEH2014US010019

PATIENT
  Sex: Male
  Weight: 67.1 kg

DRUGS (5)
  1. CLOZARIL [Suspect]
     Active Substance: CLOZAPINE
     Dosage: 300 MG, HS (AT BEDTIME)
     Route: 048
     Dates: start: 20140513
  2. HALDOL [Concomitant]
     Active Substance: HALOPERIDOL
     Dosage: 5 MG, HS (AT BEDTIME)
     Route: 048
     Dates: start: 20140425, end: 20140513
  3. PROZAC [Concomitant]
     Active Substance: FLUOXETINE HYDROCHLORIDE
     Dosage: 10 TO 20 MG DAILY
     Route: 048
     Dates: start: 20140425, end: 20140513
  4. CLOZARIL [Suspect]
     Active Substance: CLOZAPINE
     Indication: SCHIZOPHRENIA
     Dosage: 50 MG, HS (AT BEDTIME)
     Route: 048
     Dates: start: 20140501
  5. SEROQUEL [Concomitant]
     Active Substance: QUETIAPINE FUMARATE
     Dosage: UKN

REACTIONS (1)
  - Delusion [Unknown]
